FAERS Safety Report 21043648 (Version 2)
Quarter: 2022Q3

REPORT INFORMATION
  Report Type: Spontaneous
  Country: US (occurrence: None)
  Receive Date: 20220705
  Receipt Date: 20220717
  Transmission Date: 20221027
  Serious: No
  Sender: FDA-Public Use
  Company Number: US-Merck Healthcare KGaA-9332775

PATIENT
  Age: 40 Year
  Sex: Female

DRUGS (1)
  1. MAVENCLAD [Suspect]
     Active Substance: CLADRIBINE
     Indication: Multiple sclerosis
     Dosage: THERAPY

REACTIONS (10)
  - Fatigue [Unknown]
  - Musculoskeletal stiffness [Unknown]
  - Muscle tightness [Unknown]
  - Discomfort [Unknown]
  - Tension [Unknown]
  - Muscle spasms [Unknown]
  - Dyskinesia [Unknown]
  - Bradykinesia [Unknown]
  - Hypokinesia [Unknown]
  - Joint stiffness [Unknown]
